FAERS Safety Report 4349450-2 (Version None)
Quarter: 2004Q2

REPORT INFORMATION
  Report Type: 
  Country: None (occurrence: None)
  Receive Date: 20040426
  Receipt Date: 20040414
  Transmission Date: 20050107
  Serious: Yes (Hospitalization)
  Sender: FDA-Public Use
  Company Number: K200400089

PATIENT
  Age: 35 Year
  Sex: Male

DRUGS (2)
  1. ALTACE [Suspect]
     Indication: BLOOD PRESSURE
     Dosage: 5 MG, QD, ORAL
     Route: 048
     Dates: start: 20001201
  2. TYLENOL W/ CODEINE NO. 3 [Suspect]
     Indication: PAIN
     Dosage: PRN, ORAL
     Route: 048

REACTIONS (2)
  - HEPATIC FAILURE [None]
  - LIVER TRANSPLANT [None]
